FAERS Safety Report 9837978 (Version 2)
Quarter: 2014Q2

REPORT INFORMATION
  Report Type: Spontaneous
  Country: US (occurrence: None)
  Receive Date: 20131205
  Receipt Date: 20140416
  Transmission Date: 20141212
  Serious: Yes (Other)
  Sender: FDA-Public Use
  Company Number: 163-POMAL-13102956

PATIENT
  Age: 84 Year
  Sex: Female

DRUGS (6)
  1. POMALYST (POMALIDOMIDE) (4 MILLIGRAM CAPSULES) [Suspect]
     Indication: PLASMA CELL MYELOMA
     Route: 048
     Dates: start: 20130914
  2. ASPIRIN (ACETYLSALICYLIC ACID) [Concomitant]
  3. ACYCLOVIR (ACICLOVIR) [Concomitant]
  4. HCTZ (HYDROCHLOROTHIAZIDE) [Concomitant]
  5. KCL (POTASSIUM CHLORIDE) [Concomitant]
  6. AMLODIPINE (AMLODIPINE) [Concomitant]

REACTIONS (4)
  - Anaemia [None]
  - Anxiety [None]
  - Nausea [None]
  - Diarrhoea [None]
